FAERS Safety Report 5769126-4 (Version None)
Quarter: 2008Q2

REPORT INFORMATION
  Report Type: 
  Country: None (occurrence: None)
  Receive Date: 20080612
  Receipt Date: 20080324
  Transmission Date: 20081010
  Serious: Yes (Hospitalization)
  Sender: FDA-Public Use
  Company Number: US-ABBOTT-08P-163-0443804-00

PATIENT
  Sex: Female
  Weight: 56.296 kg

DRUGS (12)
  1. HUMIRA [Suspect]
     Indication: RHEUMATOID ARTHRITIS
     Route: 058
     Dates: start: 20000101
  2. LEVOTHYROXINE SODIUM [Concomitant]
     Indication: HYPOTHYROIDISM
     Dosage: GENERIC
     Route: 048
  3. FOLIC ACID [Concomitant]
     Indication: RHEUMATOID ARTHRITIS
     Route: 048
  4. METHOTREXATE [Concomitant]
     Indication: RHEUMATOID ARTHRITIS
     Route: 048
  5. ASPIRIN [Concomitant]
     Indication: CARDIAC DISORDER
     Route: 048
  6. ASPIRIN [Concomitant]
     Indication: PROPHYLAXIS
  7. ASCORBIC ACID [Concomitant]
     Indication: VITAMIN SUPPLEMENTATION
     Route: 048
  8. CALCIUM WITH VITAMIN D [Concomitant]
     Indication: MINERAL SUPPLEMENTATION
     Route: 048
  9. CALCIUM WITH VITAMIN D [Concomitant]
     Indication: VITAMIN SUPPLEMENTATION
  10. LEVOSTATIN [Concomitant]
     Indication: BLOOD CHOLESTEROL INCREASED
     Route: 048
  11. ANTIDEPRESSANTS [Concomitant]
     Indication: DEPRESSION
     Route: 048
  12. DONEPEZIL HCL [Concomitant]
     Indication: DEMENTIA ALZHEIMER'S TYPE

REACTIONS (5)
  - DEHYDRATION [None]
  - DEMENTIA [None]
  - DEMENTIA ALZHEIMER'S TYPE [None]
  - HYPERTENSION [None]
  - PNEUMONIA [None]
